FAERS Safety Report 7778701-7 (Version None)
Quarter: 2011Q3

REPORT INFORMATION
  Report Type: 
  Country: None (occurrence: None)
  Receive Date: 20110926
  Receipt Date: 20110914
  Transmission Date: 20111222
  Serious: Yes (Hospitalization, Other)
  Sender: FDA-Public Use
  Company Number: US-BAYER-2010-005846

PATIENT
  Age: 22 Year
  Sex: Female
  Weight: 70.295 kg

DRUGS (7)
  1. YASMIN [Suspect]
     Indication: CONTRACEPTION
     Dosage: UNK UNK, QD
     Dates: start: 20040101, end: 20060101
  2. DILAUDID [Concomitant]
  3. FLAGYL [Concomitant]
  4. ZITHROMAX [Concomitant]
     Dosage: 500 MG, UNK
  5. LEVAQUIN [Concomitant]
  6. PHENERGAN HCL [Concomitant]
  7. GFN/PSE/DM ER [Concomitant]
     Dosage: UNK UNK, BID
     Route: 048

REACTIONS (7)
  - CHOLECYSTITIS CHRONIC [None]
  - ABDOMINAL PAIN [None]
  - EATING DISORDER [None]
  - PAIN [None]
  - INSOMNIA [None]
  - DYSPNOEA [None]
  - CHOLELITHIASIS [None]
